APPROVED DRUG PRODUCT: LIDOCAINE HYDROCHLORIDE 0.4% IN DEXTROSE 5% IN PLASTIC CONTAINER
Active Ingredient: LIDOCAINE HYDROCHLORIDE
Strength: 400MG/100ML
Dosage Form/Route: INJECTABLE;INJECTION
Application: N018388 | Product #002
Applicant: HOSPIRA INC
Approved: Approved Prior to Jan 1, 1982 | RLD: No | RS: No | Type: DISCN